FAERS Safety Report 24746774 (Version 1)
Quarter: 2024Q4

REPORT INFORMATION
  Report Type: Spontaneous
  Country: CN (occurrence: CN)
  Receive Date: 20241218
  Receipt Date: 20241218
  Transmission Date: 20250115
  Serious: Yes (Hospitalization, Other)
  Sender: BAXTER
  Company Number: None

PATIENT
  Age: 36 Year
  Sex: Female
  Weight: 53 kg

DRUGS (3)
  1. CYCLOPHOSPHAMIDE [Suspect]
     Active Substance: CYCLOPHOSPHAMIDE
     Indication: Chemotherapy
     Dosage: 0.8 G, ONE TIME IN ONE DAY, DILUTED WITH 30 ML OF 0.9% SODIUM CHLORIDE, FOR ANTI-TUMOR NEOADJUVANT C
     Route: 041
     Dates: start: 20241117, end: 20241117
  2. CYCLOPHOSPHAMIDE [Suspect]
     Active Substance: CYCLOPHOSPHAMIDE
     Indication: Neoplasm malignant
  3. SODIUM CHLORIDE [Suspect]
     Active Substance: SODIUM CHLORIDE
     Indication: Medication dilution
     Dosage: (0.9 %) 30 ML, ONE TIME IN ONE DAY, USED TO DILUTE 0.8 G CYCLOPHOSPHAMIDE, FOR ANTI-TUMOR NEOADJUVAN
     Route: 041
     Dates: start: 20241117, end: 20241117

REACTIONS (4)
  - Myelosuppression [Recovered/Resolved]
  - White blood cell count decreased [Recovered/Resolved]
  - Neutrophil count decreased [Recovered/Resolved]
  - Lymphocyte count decreased [Recovered/Resolved]

NARRATIVE: CASE EVENT DATE: 20241130
